FAERS Safety Report 20085013 (Version 5)
Quarter: 2023Q1

REPORT INFORMATION
  Report Type: Report from Study
  Country: ES (occurrence: None)
  Receive Date: 20211118
  Receipt Date: 20230327
  Transmission Date: 20230418
  Serious: Yes (Hospitalization)
  Sender: FDA-Public Use
  Company Number: ES-ROCHE-2955665

PATIENT
  Age: 67 Year
  Sex: Female
  Weight: 60.3 kg

DRUGS (5)
  1. ATEZOLIZUMAB [Suspect]
     Active Substance: ATEZOLIZUMAB
     Indication: Neuroendocrine carcinoma metastatic
     Dosage: ON 22/OCT/2021, SHE RECEIVED LAST DOSE OF ATEZOLIZUMAB (1200 MG) PRIOR TO ONSET OF SERIOUS ADVERSE E
     Route: 041
     Dates: start: 20210323
  2. CABOZANTINIB [Suspect]
     Active Substance: CABOZANTINIB
     Indication: Neuroendocrine carcinoma metastatic
     Dosage: ON 22/OCT/2021 AND 08/NOV/2021, SHE RECEIVED LAST DOSE OF CABOZANTINIB (20 MG) PRIOR TO ONSET OF SER
     Route: 048
     Dates: start: 20210323
  3. AMLODIPINE [Concomitant]
     Active Substance: AMLODIPINE BESYLATE
     Indication: Hypertension
     Route: 048
     Dates: start: 20201210
  4. LYRICA [Concomitant]
     Active Substance: PREGABALIN
     Indication: Anxiety
     Route: 048
     Dates: start: 20151116
  5. LYRICA [Concomitant]
     Active Substance: PREGABALIN
     Indication: Neuralgia

REACTIONS (2)
  - Hypomagnesaemia [Recovered/Resolved]
  - Intestinal obstruction [Recovered/Resolved]

NARRATIVE: CASE EVENT DATE: 20211108
